FAERS Safety Report 10862336 (Version 4)
Quarter: 2015Q4

REPORT INFORMATION
  Report Type: Report from Study
  Country: JP (occurrence: JP)
  Receive Date: 20150224
  Receipt Date: 20151112
  Transmission Date: 20160304
  Serious: Yes (Other)
  Sender: FDA-Public Use
  Company Number: JP-JNJFOC-20150216843

PATIENT
  Age: 67 Year
  Sex: Male

DRUGS (12)
  1. PEGINTRON [Suspect]
     Active Substance: PEGINTERFERON ALFA-2B
     Indication: CHRONIC HEPATITIS C
     Route: 058
     Dates: start: 20141203, end: 20150121
  2. PEGINTRON [Suspect]
     Active Substance: PEGINTERFERON ALFA-2B
     Indication: CHRONIC HEPATITIS C
     Route: 058
     Dates: start: 20141126, end: 20141126
  3. PEGINTRON [Suspect]
     Active Substance: PEGINTERFERON ALFA-2B
     Indication: CHRONIC HEPATITIS C
     Route: 058
     Dates: start: 20141112, end: 20141112
  4. DIGOXIN. [Concomitant]
     Active Substance: DIGOXIN
     Indication: HEPATITIS ACUTE
     Route: 048
  5. PILSICAINIDE [Concomitant]
     Active Substance: PILSICAINIDE
     Indication: HEPATITIS ACUTE
     Route: 048
  6. PEGINTRON [Suspect]
     Active Substance: PEGINTERFERON ALFA-2B
     Indication: CHRONIC HEPATITIS C
     Route: 058
     Dates: start: 20141119, end: 20141119
  7. RIBAVIRIN. [Concomitant]
     Active Substance: RIBAVIRIN
     Indication: CHRONIC HEPATITIS C
     Route: 048
     Dates: start: 20141112
  8. DIART [Concomitant]
     Active Substance: AZOSEMIDE
     Indication: HEPATITIS ACUTE
     Route: 048
  9. ASPARA POTASSIUM [Concomitant]
     Active Substance: POTASSIUM ASPARTATE
     Indication: HEPATITIS ACUTE
     Route: 048
  10. SOVRIAD [Suspect]
     Active Substance: SIMEPREVIR
     Indication: CHRONIC HEPATITIS C
     Route: 048
     Dates: start: 20141112, end: 20150203
  11. PEGINTRON [Suspect]
     Active Substance: PEGINTERFERON ALFA-2B
     Indication: CHRONIC HEPATITIS C
     Route: 058
     Dates: start: 20150128
  12. CONSTAN [Concomitant]
     Active Substance: ALPRAZOLAM
     Indication: HEPATITIS ACUTE
     Route: 048

REACTIONS (5)
  - Pyrexia [Recovering/Resolving]
  - Platelet count decreased [Recovered/Resolved]
  - Hepatic function abnormal [Recovered/Resolved]
  - Constipation [Recovering/Resolving]
  - Jaundice [Recovering/Resolving]

NARRATIVE: CASE EVENT DATE: 20141113
